FAERS Safety Report 18774018 (Version 2)
Quarter: 2021Q1

REPORT INFORMATION
  Report Type: Spontaneous
  Country: DE (occurrence: DE)
  Receive Date: 20210122
  Receipt Date: 20210218
  Transmission Date: 20210419
  Serious: Yes (Disabling)
  Sender: FDA-Public Use
  Company Number: DE-GUERBET-DE-20210005

PATIENT
  Age: 49 Year
  Sex: Male

DRUGS (6)
  1. DOTAREM [Suspect]
     Active Substance: GADOTERATE MEGLUMINE
     Indication: MAGNETIC RESONANCE IMAGING
     Route: 042
     Dates: start: 20060704, end: 20060704
  2. MAGNEVIST [Suspect]
     Active Substance: GADOPENTETATE DIMEGLUMINE
     Route: 042
     Dates: start: 20060404, end: 20060404
  3. MAGNEVIST [Suspect]
     Active Substance: GADOPENTETATE DIMEGLUMINE
     Indication: MAGNETIC RESONANCE IMAGING
     Route: 042
     Dates: start: 20050828, end: 20050828
  4. OMNISCAN [Suspect]
     Active Substance: GADODIAMIDE
     Indication: MAGNETIC RESONANCE IMAGING
     Route: 042
     Dates: start: 20060907, end: 20060907
  5. PROHANCE [Suspect]
     Active Substance: GADOTERIDOL
     Indication: MAGNETIC RESONANCE IMAGING
     Route: 042
     Dates: start: 20060303, end: 20060303
  6. OMNISCAN [Suspect]
     Active Substance: GADODIAMIDE
     Route: 042
     Dates: start: 20060208, end: 20060208

REACTIONS (1)
  - Nephrogenic systemic fibrosis [Unknown]

NARRATIVE: CASE EVENT DATE: 2006
